FAERS Safety Report 15577765 (Version 2)
Quarter: 2018Q4

REPORT INFORMATION
  Report Type: Spontaneous
  Country: US (occurrence: US)
  Receive Date: 20181102
  Receipt Date: 20181114
  Transmission Date: 20190205
  Serious: No
  Sender: FDA-Public Use
  Company Number: US-HORIZON-ACT-0332-2018

PATIENT
  Age: 11 Year
  Sex: Male

DRUGS (7)
  1. IMMURAN [Concomitant]
  2. PREDNISONE. [Concomitant]
     Active Substance: PREDNISONE
  3. LEVAQUIN [Concomitant]
     Active Substance: LEVOFLOXACIN
  4. POTASSIUM CHLORIDE. [Concomitant]
     Active Substance: POTASSIUM CHLORIDE
  5. ACTIMMUNE [Suspect]
     Active Substance: INTERFERON GAMMA-1B
     Indication: CHRONIC GRANULOMATOUS DISEASE
     Dosage: 0.2 ML TIW (MONDAY, WEDNESDAY, FRIDAY)
     Dates: start: 20090608
  6. BACTRIM [Concomitant]
     Active Substance: SULFAMETHOXAZOLE\TRIMETHOPRIM
  7. AMBISOME [Concomitant]
     Active Substance: AMPHOTERICIN B
     Dosage: 120 MG, IV FOR 2 HRS 12-2 PM
     Route: 042

REACTIONS (4)
  - Injection site pain [Unknown]
  - Patient dissatisfaction with treatment [Unknown]
  - Fatigue [Unknown]
  - Influenza like illness [Unknown]
